FAERS Safety Report 4337888-9 (Version None)
Quarter: 2004Q1

REPORT INFORMATION
  Report Type: 
  Country: None (occurrence: None)
  Receive Date: 20040329
  Receipt Date: 20040129
  Transmission Date: 20041129
  Serious: No
  Sender: FDA-Public Use
  Company Number: USA040158018

PATIENT
  Age: 8 Year
  Sex: Male
  Weight: 27 kg

DRUGS (1)
  1. STRATTERA [Suspect]
     Dosage: 45 MG/DAY
     Dates: start: 20031101

REACTIONS (8)
  - AGITATION [None]
  - ANGER [None]
  - CRYING [None]
  - DECREASED APPETITE [None]
  - FATIGUE [None]
  - INCREASED APPETITE [None]
  - PRESCRIBED OVERDOSE [None]
  - SOMNOLENCE [None]
